FAERS Safety Report 9252468 (Version 1)
Quarter: 2013Q1

REPORT INFORMATION
  Report Type: Spontaneous
  Country: US (occurrence: None)
  Receive Date: 20130305
  Receipt Date: 20130305
  Transmission Date: 20140127
  Serious: Yes (Other)
  Sender: FDA-Public Use
  Company Number: 163-201880-12082863

PATIENT
  Age: 67 Year
  Sex: Male
  Weight: 86.18 kg

DRUGS (4)
  1. REVLIMID [Suspect]
     Indication: PLASMA CELL MYELOMA
     Route: 048
     Dates: start: 20080317
  2. ADVIL (IBUPROFEN) [Concomitant]
  3. EXCEDRIN MIGRAINE (THOMAPYRIN N) [Concomitant]
  4. VITAMINS [Concomitant]

REACTIONS (1)
  - Full blood count decreased [None]
